FAERS Safety Report 6368628-X (Version None)
Quarter: 2009Q3

REPORT INFORMATION
  Report Type: 
  Country: None (occurrence: None)
  Receive Date: 20090917
  Receipt Date: 20090917
  Transmission Date: 20100115
  Serious: Yes (Hospitalization)
  Sender: FDA-Public Use
  Company Number: None

PATIENT
  Sex: Male
  Weight: 104.3273 kg

DRUGS (3)
  1. REMICADE [Suspect]
     Indication: ANKYLOSING SPONDYLITIS
     Dosage: 600 MG EVERY 6 WEEKS IV DRIP
     Route: 041
     Dates: start: 20040601, end: 20090428
  2. TESTOSTERONE [Concomitant]
  3. AMRIX [Concomitant]

REACTIONS (1)
  - GASTRIC CANCER [None]
